FAERS Safety Report 7233114-1 (Version None)
Quarter: 2011Q1

REPORT INFORMATION
  Report Type: 
  Country: None (occurrence: None)
  Receive Date: 20110106
  Receipt Date: 20101221
  Transmission Date: 20110831
  Serious: Yes (Hospitalization)
  Sender: FDA-Public Use
  Company Number: AUR-APL-2010-03193

PATIENT
  Age: 20 Year
  Sex: Male

DRUGS (4)
  1. SEPTRA [Suspect]
  2. CEFTRIAXONE [Suspect]
     Dosage: ONCE
  3. DOXYCYCLINE [Suspect]
  4. VANCOMYCIN [Suspect]
     Indication: PREOPERATIVE CARE
     Dosage: ONCE

REACTIONS (10)
  - SEPTIC SHOCK [None]
  - DISSEMINATED INTRAVASCULAR COAGULATION [None]
  - SPLENIC INFARCTION [None]
  - RENAL FAILURE [None]
  - LICHENOID KERATOSIS [None]
  - RESPIRATORY FAILURE [None]
  - DRUG RASH WITH EOSINOPHILIA AND SYSTEMIC SYMPTOMS [None]
  - TRANSAMINASES INCREASED [None]
  - HUMAN HERPESVIRUS 6 INFECTION [None]
  - MYALGIA [None]
